FAERS Safety Report 15802865 (Version 1)
Quarter: 2019Q1

REPORT INFORMATION
  Report Type: Spontaneous
  Country: CA (occurrence: CA)
  Receive Date: 20190109
  Receipt Date: 20190109
  Transmission Date: 20190417
  Serious: Yes (Hospitalization, Other)
  Sender: FDA-Public Use
  Company Number: CA-PFIZER INC-2019011193

PATIENT
  Age: 55 Year
  Sex: Female

DRUGS (7)
  1. AFINITOR [Suspect]
     Active Substance: EVEROLIMUS
     Indication: CARCINOID TUMOUR
     Dosage: 10 MG, QD
     Route: 048
  2. VITAMIN D [ERGOCALCIFEROL] [Suspect]
     Active Substance: ERGOCALCIFEROL
     Dosage: UNK, 1/WEEK
     Route: 065
  3. SANDOSTATIN [Suspect]
     Active Substance: OCTREOTIDE ACETATE
     Indication: CARCINOID TUMOUR
     Dosage: 30 MG, MONTHLY
     Route: 030
  4. PANTOPRAZOLE [Suspect]
     Active Substance: PANTOPRAZOLE
     Dosage: 40 MG, QD
     Route: 048
  5. SANDOSTATIN [Suspect]
     Active Substance: OCTREOTIDE ACETATE
     Dosage: 20 MG, MONTHLY
     Route: 030
  6. OXAZEPAM. [Concomitant]
     Active Substance: OXAZEPAM
     Dosage: UNK
     Route: 048
  7. SANDOSTATIN [Suspect]
     Active Substance: OCTREOTIDE ACETATE
     Dosage: 20 MG, MONTHLY
     Route: 030

REACTIONS (22)
  - Cough [Recovered/Resolved]
  - Depression [Recovered/Resolved]
  - Carcinoid tumour of the stomach [Recovered/Resolved]
  - Constipation [Recovered/Resolved]
  - Hypoglycaemia [Recovered/Resolved]
  - Transient global amnesia [Recovered/Resolved]
  - Tremor [Recovered/Resolved]
  - Drug ineffective [Recovered/Resolved]
  - Recurrent cancer [Recovered/Resolved]
  - Abdominal mass [Recovered/Resolved]
  - Blood pressure systolic increased [Recovered/Resolved]
  - Chest pain [Recovered/Resolved]
  - Cholelithiasis [Recovered/Resolved]
  - Abdominal adhesions [Recovered/Resolved]
  - Malignant neoplasm progression [Recovered/Resolved]
  - Diarrhoea [Recovered/Resolved]
  - Intestinal obstruction [Recovered/Resolved]
  - Blood pressure increased [Recovered/Resolved]
  - Dysgeusia [Recovered/Resolved]
  - Stress [Recovered/Resolved]
  - Dizziness [Recovered/Resolved]
  - Pneumonia [Recovered/Resolved]
